FAERS Safety Report 8462814-0 (Version None)
Quarter: 2012Q2

REPORT INFORMATION
  Report Type: 
  Country: None (occurrence: None)
  Receive Date: 20120625
  Receipt Date: 20120620
  Transmission Date: 20120825
  Serious: Yes (Disabling)
  Sender: FDA-Public Use
  Company Number: PHHY2012US052887

PATIENT
  Age: 87 Year
  Sex: Male

DRUGS (1)
  1. GALANTAMINE HYDROBROMIDE [Suspect]
     Indication: VASCULAR DEMENTIA
     Dosage: 16 MG, UNK

REACTIONS (3)
  - TREMOR [None]
  - DYSKINESIA [None]
  - MYOCLONUS [None]
